FAERS Safety Report 7728155-1 (Version None)
Quarter: 2011Q3

REPORT INFORMATION
  Report Type: 
  Country: None (occurrence: None)
  Receive Date: 20110905
  Receipt Date: 20110826
  Transmission Date: 20111222
  Serious: Yes (Other)
  Sender: FDA-Public Use
  Company Number: FR-BRISTOL-MYERS SQUIBB COMPANY-15944655

PATIENT
  Age: 75 Year
  Sex: Male

DRUGS (4)
  1. METFORMIN HCL [Suspect]
     Dosage: 1 DF: 1 TAB
     Route: 048
  2. PERINDOPRIL [Concomitant]
     Indication: HYPERTENSION
     Dosage: BEFORE 2007
     Route: 048
  3. ONGLYZA [Suspect]
     Dates: start: 20110721, end: 20110801
  4. CRESTOR [Concomitant]
     Indication: HYPERCHOLESTEROLAEMIA
     Dosage: 1 DF: 1 TAB
     Route: 048
     Dates: start: 20091016

REACTIONS (4)
  - OEDEMA PERIPHERAL [None]
  - DRUG INEFFECTIVE [None]
  - PRURITUS [None]
  - SKIN LESION [None]
